FAERS Safety Report 15347942 (Version 1)
Quarter: 2018Q3

REPORT INFORMATION
  Report Type: Spontaneous
  Country: US (occurrence: US)
  Receive Date: 20180904
  Receipt Date: 20180904
  Transmission Date: 20181010
  Serious: Yes (Hospitalization, Other)
  Sender: FDA-Public Use
  Company Number: US-UNITED THERAPEUTICS-UNT-2018-013676

PATIENT
  Age: 67 Year
  Sex: Male
  Weight: 75.96 kg

DRUGS (1)
  1. REMODULIN [Suspect]
     Active Substance: TREPROSTINIL
     Indication: PULMONARY ARTERIAL HYPERTENSION
     Dosage: 0.01 ?G/KG, CONTINUING
     Route: 058
     Dates: start: 20180823

REACTIONS (5)
  - Dizziness [Not Recovered/Not Resolved]
  - Presyncope [Unknown]
  - Fall [Recovered/Resolved]
  - Infusion site pain [Unknown]
  - Syncope [Unknown]

NARRATIVE: CASE EVENT DATE: 201808
